FAERS Safety Report 7537362-2 (Version None)
Quarter: 2011Q2

REPORT INFORMATION
  Report Type: 
  Country: None (occurrence: None)
  Receive Date: 20110603
  Receipt Date: 20110518
  Transmission Date: 20111010
  Serious: Yes (Hospitalization)
  Sender: FDA-Public Use
  Company Number: 2011MA006077

PATIENT
  Age: 11 Year
  Sex: Male
  Weight: 33 kg

DRUGS (2)
  1. NAPROXEN [Suspect]
     Indication: ARTHRITIS
     Dosage: 250 MG;BID;PO
     Route: 048
  2. SULFASALAZINE [Suspect]
     Indication: ARTHRITIS
     Dosage: 500 MG;BID;PO
     Route: 048

REACTIONS (6)
  - HEPATOSPLENOMEGALY [None]
  - HYPONATRAEMIA [None]
  - HEPATITIS ACUTE [None]
  - DRUG RASH WITH EOSINOPHILIA AND SYSTEMIC SYMPTOMS [None]
  - COAGULOPATHY [None]
  - RENAL TUBULAR DISORDER [None]
